FAERS Safety Report 7625288-5 (Version None)
Quarter: 2011Q3

REPORT INFORMATION
  Report Type: 
  Country: None (occurrence: None)
  Receive Date: 20110721
  Receipt Date: 20110718
  Transmission Date: 20111222
  Serious: No
  Sender: FDA-Public Use
  Company Number: US-PFIZER INC-2011162843

PATIENT
  Sex: Male
  Weight: 113 kg

DRUGS (7)
  1. LOVASTATIN [Concomitant]
     Dosage: 20 MG, 1X/DAY
  2. METOPROLOL [Concomitant]
     Dosage: 100 MG, 2X/DAY
  3. FISH OIL [Concomitant]
     Dosage: 1200 MG, 2X/DAY
  4. LISINOPRIL [Concomitant]
     Dosage: 20 MG, 1X/DAY
  5. TERAZOSIN [Concomitant]
     Dosage: 1 MG, 1X/DAY
  6. NIACIN [Concomitant]
     Dosage: 500 MG, UNK
  7. CHANTIX [Suspect]
     Indication: SMOKING CESSATION THERAPY
     Dosage: 0.5 MG, 1X/DAY
     Route: 048
     Dates: start: 20110515

REACTIONS (2)
  - RASH [None]
  - IRRITABILITY [None]
